FAERS Safety Report 23718979 (Version 1)
Quarter: 2024Q2

REPORT INFORMATION
  Report Type: Spontaneous
  Country: CN (occurrence: CN)
  Receive Date: 20240408
  Receipt Date: 20240408
  Transmission Date: 20240716
  Serious: Yes (Hospitalization, Other)
  Sender: FDA-Public Use
  Company Number: CN-009507513-2404CHN000304

PATIENT
  Age: 61 Year
  Sex: Male
  Weight: 60 kg

DRUGS (3)
  1. CILASTATIN SODIUM\IMIPENEM [Suspect]
     Active Substance: CILASTATIN SODIUM\IMIPENEM
     Indication: Anti-infective therapy
     Dosage: 1 G, TID (ALSO REPORTED AS QD), IV DRIP
     Route: 041
     Dates: start: 20240314, end: 20240319
  2. CILASTATIN SODIUM\IMIPENEM [Suspect]
     Active Substance: CILASTATIN SODIUM\IMIPENEM
     Indication: Sepsis
  3. SODIUM CHLORIDE [Concomitant]
     Active Substance: SODIUM CHLORIDE
     Dosage: 100 ML, QD, IV DRIP
     Route: 041
     Dates: start: 20240314

REACTIONS (3)
  - Seizure [Recovering/Resolving]
  - Confusional state [Recovering/Resolving]
  - Septic encephalopathy [Unknown]

NARRATIVE: CASE EVENT DATE: 20240301
